FAERS Safety Report 13432737 (Version 9)
Quarter: 2022Q1

REPORT INFORMATION
  Report Type: Spontaneous
  Country: GB (occurrence: GB)
  Receive Date: 20170412
  Receipt Date: 20220224
  Transmission Date: 20220424
  Serious: Yes (Other)
  Sender: FDA-Public Use
  Company Number: GB-SA-2017SA056430

PATIENT
  Age: 75 Year
  Sex: Female

DRUGS (30)
  1. CYCLIZINE [Suspect]
     Active Substance: CYCLIZINE
     Indication: Product used for unknown indication
     Dosage: UNK, (DOSAGE FORM: UNSPECIFIED)
     Route: 065
     Dates: start: 20170315
  2. CYCLIZINE [Suspect]
     Active Substance: CYCLIZINE
     Dosage: UNK
     Route: 065
     Dates: start: 20170329
  3. DOMPERIDONE [Suspect]
     Active Substance: DOMPERIDONE
     Indication: Product used for unknown indication
     Dosage: UNK
     Route: 065
     Dates: end: 20170329
  4. DOMPERIDONE [Suspect]
     Active Substance: DOMPERIDONE
     Dosage: 1 DF (EVERY 2 WEEKS)
     Route: 065
     Dates: end: 20170329
  5. ROPINIROLE [Suspect]
     Active Substance: ROPINIROLE
     Indication: Product used for unknown indication
     Dosage: UNK, DOSAGE FORM: UNSPECIFIED
     Route: 065
  6. ROPINIROLE [Suspect]
     Active Substance: ROPINIROLE
     Dosage: 1 DF (EVERY 2 WEEKS)
     Route: 065
  7. CITALOPRAM [Suspect]
     Active Substance: CITALOPRAM HYDROBROMIDE
     Indication: Product used for unknown indication
     Dosage: 1 DF, (INTERVAL: 2 WEEK)
     Route: 065
  8. LACTULOSE [Suspect]
     Active Substance: LACTULOSE
     Indication: Product used for unknown indication
     Dosage: UNK, DOSAGE FORM: UNSPECIFIED;
     Route: 065
  9. LANSOPRAZOLE [Suspect]
     Active Substance: LANSOPRAZOLE
     Indication: Product used for unknown indication
     Dosage: UNK, DOSAGE FORM: UNSPECIFIED
     Route: 065
  10. LANSOPRAZOLE [Suspect]
     Active Substance: LANSOPRAZOLE
     Dosage: 1 DF (EVERY 2 WEEKS)
     Route: 065
  11. QUETIAPINE FUMARATE [Suspect]
     Active Substance: QUETIAPINE FUMARATE
     Indication: Product used for unknown indication
     Dosage: UNK, DOSAGE FORM: UNSPECIFIED
     Route: 048
  12. QUETIAPINE FUMARATE [Suspect]
     Active Substance: QUETIAPINE FUMARATE
     Dosage: 1 DF (EVERY 2 WEEKS)
     Route: 065
  13. RIVASTIGMINE [Suspect]
     Active Substance: RIVASTIGMINE
     Indication: Product used for unknown indication
     Dosage: UNK, DOSAGE FORM: UNSPECIFIED
     Route: 065
  14. RIVASTIGMINE [Suspect]
     Active Substance: RIVASTIGMINE
     Dosage: 1 DF (EVERY 2 WEEKS)
     Route: 065
  15. SENNA TABS [Suspect]
     Active Substance: SENNOSIDES A AND B
     Indication: Product used for unknown indication
     Dosage: UNK
     Route: 065
  16. SENNA TABS [Suspect]
     Active Substance: SENNOSIDES A AND B
     Dosage: 1 DF (EVERY 2 WEEKS)
     Route: 065
  17. BISOPROLOL [Suspect]
     Active Substance: BISOPROLOL
     Indication: Product used for unknown indication
     Dosage: UNK
     Route: 065
  18. BISOPROLOL [Suspect]
     Active Substance: BISOPROLOL
     Dosage: UNK (SALT NOT SPECIFIED)
     Route: 065
  19. BISOPROLOL [Suspect]
     Active Substance: BISOPROLOL
     Dosage: UNK(TIME INTRVAL 2 WEEK)
     Route: 065
  20. CEREZYME [Suspect]
     Active Substance: IMIGLUCERASE
     Indication: Product used for unknown indication
     Dosage: UNK 800 UNITS 2 ONCE A WEEK; ;
     Route: 041
     Dates: start: 20170315, end: 20170329
  21. CEREZYME [Suspect]
     Active Substance: IMIGLUCERASE
     Dosage: 800 IU(1 IN 2WEEK)(DF: UNSPECIFIED, DATE OF LAST ADMIN WAS:15-MAR-2017 AND 29-MAR-2017
     Route: 041
     Dates: end: 20170315
  22. CEREZYME [Suspect]
     Active Substance: IMIGLUCERASE
     Dosage: 800 IU, UNK
     Route: 041
     Dates: end: 20170329
  23. CEREZYME [Suspect]
     Active Substance: IMIGLUCERASE
     Dosage: UNK
     Route: 041
     Dates: end: 20170329
  24. BENSERAZIDE HYDROCHLORIDE\LEVODOPA [Suspect]
     Active Substance: BENSERAZIDE HYDROCHLORIDE\LEVODOPA
     Indication: Product used for unknown indication
     Dosage: UNK, (DOSAGE FORM: UNSPECIFIED)
     Route: 065
  25. BENSERAZIDE HYDROCHLORIDE\LEVODOPA [Suspect]
     Active Substance: BENSERAZIDE HYDROCHLORIDE\LEVODOPA
     Dosage: 1 DF (EVERY 2 WEEKS)
     Route: 065
  26. HERBALS\SENNOSIDES [Suspect]
     Active Substance: HERBALS\SENNOSIDES
     Indication: Product used for unknown indication
     Dosage: UNK
     Route: 065
  27. HERBALS\SENNOSIDES [Suspect]
     Active Substance: HERBALS\SENNOSIDES
     Indication: Product used for unknown indication
     Dosage: UNK(INTERVAL 2 WEEK)
     Route: 065
  28. BISOPROLOL [Suspect]
     Active Substance: BISOPROLOL
     Indication: Product used for unknown indication
     Dosage: UNK
     Route: 065
  29. RIVASTIGMINE [Suspect]
     Active Substance: RIVASTIGMINE
     Indication: Product used for unknown indication
     Dosage: UNK(UNK, DOSAGE FORM: UNSPECIFIED )
     Route: 065
  30. BENSERAZIDE HYDROCHLORIDE\LEVODOPA [Concomitant]
     Active Substance: BENSERAZIDE HYDROCHLORIDE\LEVODOPA
     Indication: Product used for unknown indication
     Dosage: UNK
     Route: 065

REACTIONS (3)
  - Parkinson^s disease [Unknown]
  - Dizziness [Unknown]
  - Dizziness [Unknown]
